FAERS Safety Report 4830976-X (Version None)
Quarter: 2005Q4

REPORT INFORMATION
  Report Type: 
  Country: None (occurrence: None)
  Receive Date: 20051114
  Receipt Date: 20051031
  Transmission Date: 20060501
  Serious: Yes (Death)
  Sender: FDA-Public Use
  Company Number: 2004-120933-NL

PATIENT
  Age: 21 Year
  Sex: Female

DRUGS (5)
  1. MIRTAZAPINE [Suspect]
     Dosage: DF
  2. DEXTROPROPOXYPHENE [Suspect]
     Dosage: DF
  3. ACETAMINOPHEN [Suspect]
     Dosage: DF
  4. VENLAFAXINE HCL [Suspect]
     Dosage: DF
  5. ZOLPIDEM TARTRATE [Suspect]
     Dosage: DF

REACTIONS (1)
  - MULTIPLE DRUG OVERDOSE [None]
